FAERS Safety Report 7639894-5 (Version None)
Quarter: 2011Q3

REPORT INFORMATION
  Report Type: 
  Country: None (occurrence: None)
  Receive Date: 20110727
  Receipt Date: 20110714
  Transmission Date: 20111222
  Serious: Yes (Other)
  Sender: FDA-Public Use
  Company Number: PHEH2010US03875

PATIENT
  Sex: Male

DRUGS (14)
  1. TAXOTERE [Concomitant]
     Dosage: 68 MG IV OVER AN HOUR
     Route: 042
  2. SODIUM CHLORIDE [Concomitant]
  3. PROCRIT                            /00909301/ [Concomitant]
     Dosage: 40000 U
  4. ALOXI [Concomitant]
     Dosage: 25 MG
     Route: 042
  5. ZOLOFT [Concomitant]
     Dosage: 50 MG , DAILY
     Route: 048
  6. AREDIA [Suspect]
     Indication: OSTEOPOROSIS
  7. LOTREL [Concomitant]
  8. ALLOPURINOL [Concomitant]
  9. MORPHINE ^ADRIAN^ [Concomitant]
  10. ROXICODONE [Concomitant]
     Dosage: 15 MG
  11. ZOMETA [Suspect]
     Indication: PROSTATE CANCER METASTATIC
  12. CASODEX [Concomitant]
  13. DECADRON [Concomitant]
     Dosage: 4 MG
     Route: 042
  14. CELEBREX [Concomitant]

REACTIONS (12)
  - OSTEONECROSIS OF JAW [None]
  - METASTASES TO SPINE [None]
  - PAIN [None]
  - BACK PAIN [None]
  - OSTEOMYELITIS CHRONIC [None]
  - PRIMARY SEQUESTRUM [None]
  - PAIN IN EXTREMITY [None]
  - INJURY [None]
  - METASTASES TO BONE [None]
  - LUMBAR SPINAL STENOSIS [None]
  - SPINAL OSTEOARTHRITIS [None]
  - GOUTY ARTHRITIS [None]
